FAERS Safety Report 6503116-9 (Version None)
Quarter: 2009Q4

REPORT INFORMATION
  Report Type: 
  Country: None (occurrence: None)
  Receive Date: 20091217
  Receipt Date: 20091215
  Transmission Date: 20100525
  Serious: Yes (Other)
  Sender: FDA-Public Use
  Company Number: PHEH2002US06497

PATIENT
  Sex: Male
  Weight: 104.2 kg

DRUGS (7)
  1. STARLIX [Suspect]
     Dosage: UNK
     Route: 048
     Dates: start: 20020619, end: 20020715
  2. STARLIX [Suspect]
     Route: 048
     Dates: start: 20020717
  3. DIOVAN T30230+CAPS [Suspect]
     Indication: CARDIOVASCULAR DISORDER
     Dosage: UNK
     Dates: start: 20020619, end: 20020716
  4. HYDROCHLOROTHIAZIDE [Suspect]
     Dates: start: 20020618, end: 20020716
  5. ZESTORETIC [Suspect]
     Dates: start: 20020107, end: 20020716
  6. TRICOR [Concomitant]
  7. ASPIRIN [Concomitant]

REACTIONS (4)
  - BRONCHITIS [None]
  - HYPONATRAEMIA [None]
  - NAUSEA [None]
  - RENAL FAILURE [None]
